FAERS Safety Report 10149268 (Version 3)
Quarter: 2016Q2

REPORT INFORMATION
  Report Type: Report from Study
  Country: US (occurrence: US)
  Receive Date: 20140502
  Receipt Date: 20160427
  Transmission Date: 20160815
  Serious: Yes (Hospitalization, Other)
  Sender: FDA-Public Use
  Company Number: US-SA-2014SA055599

PATIENT
  Age: 56 Year
  Sex: Male

DRUGS (3)
  1. FABRAZYME [Suspect]
     Active Substance: AGALSIDASE BETA
     Indication: FABRY^S DISEASE
     Route: 042
     Dates: start: 20050629
  2. IMMUNOSUPPRESSIVE AGENTS [Concomitant]
     Active Substance: UNSPECIFIED INGREDIENT
  3. GABAPENTIN. [Concomitant]
     Active Substance: GABAPENTIN
     Indication: NEURALGIA

REACTIONS (11)
  - Disorientation [Unknown]
  - Fall [Unknown]
  - Precancerous skin lesion [Not Recovered/Not Resolved]
  - Back pain [Not Recovered/Not Resolved]
  - Paraesthesia [Recovered/Resolved]
  - Gastrointestinal disorder [Unknown]
  - Chest pain [Unknown]
  - Transient ischaemic attack [Recovered/Resolved]
  - Pain [Recovered/Resolved]
  - Hypoaesthesia [Recovered/Resolved]
  - Malaise [Not Recovered/Not Resolved]

NARRATIVE: CASE EVENT DATE: 201403
